FAERS Safety Report 14144017 (Version 4)
Quarter: 2018Q4

REPORT INFORMATION
  Report Type: Spontaneous
  Country: AT (occurrence: AT)
  Receive Date: 20171031
  Receipt Date: 20181126
  Transmission Date: 20190204
  Serious: Yes (Hospitalization, Other)
  Sender: FDA-Public Use
  Company Number: AT-SUN PHARMACEUTICAL INDUSTRIES LTD-2017RR-153478

PATIENT
  Age: 67 Year
  Sex: Female

DRUGS (38)
  1. LEPONEX [Suspect]
     Active Substance: CLOZAPINE
     Indication: PRODUCT USED FOR UNKNOWN INDICATION
     Dosage: 400 MG
     Route: 048
     Dates: start: 20170526, end: 20170619
  2. PRAXITEN [Concomitant]
     Active Substance: OXAZEPAM
     Dosage: 50 MG
     Route: 065
     Dates: start: 20170626, end: 20170630
  3. RISPERIDAL [Concomitant]
     Active Substance: RISPERIDONE
     Dosage: 3 MG
     Route: 065
     Dates: start: 20170630, end: 20170630
  4. RISPERIDAL [Concomitant]
     Active Substance: RISPERIDONE
     Dosage: 2 MG
     Route: 065
     Dates: start: 20170703, end: 20170704
  5. RISPERIDAL [Concomitant]
     Active Substance: RISPERIDONE
     Dosage: 1 MG
     Route: 065
     Dates: start: 20170706, end: 20170706
  6. TEMESTA [LORAZEPAM] [Concomitant]
     Active Substance: LORAZEPAM
     Dosage: 3 MG
     Route: 065
     Dates: start: 20170720
  7. ABILIFY [Suspect]
     Active Substance: ARIPIPRAZOLE
     Dosage: 15 MG, UNK
     Route: 048
     Dates: start: 2016, end: 20161122
  8. SEROQUEL [Suspect]
     Active Substance: QUETIAPINE FUMARATE
     Dosage: 300 MG
     Route: 048
     Dates: start: 20170617, end: 20170618
  9. PRAXITEN [Concomitant]
     Active Substance: OXAZEPAM
     Indication: PRODUCT USED FOR UNKNOWN INDICATION
     Dosage: 130 MG
     Route: 065
     Dates: start: 20170614, end: 20170616
  10. PRAXITEN [Concomitant]
     Active Substance: OXAZEPAM
     Dosage: 97.5 MG
     Route: 065
     Dates: start: 20170617, end: 20170617
  11. LOVENOX [Concomitant]
     Active Substance: ENOXAPARIN SODIUM
     Indication: PRODUCT USED FOR UNKNOWN INDICATION
     Dosage: 40 MG
     Route: 065
     Dates: start: 20170621, end: 20170729
  12. RISPERIDAL [Concomitant]
     Active Substance: RISPERIDONE
     Dosage: 4 MG
     Route: 065
     Dates: start: 20170701, end: 20170702
  13. LAEVOLAC [Concomitant]
     Active Substance: LACTULOSE
     Indication: PRODUCT USED FOR UNKNOWN INDICATION
     Dosage: 2 EL (2 TABLESPOONS)
     Route: 065
     Dates: start: 20170723
  14. ABILIFY [Concomitant]
     Active Substance: ARIPIPRAZOLE
     Indication: PRODUCT USED FOR UNKNOWN INDICATION
     Dosage: 5 MG
     Route: 065
     Dates: start: 20170725, end: 20170726
  15. SEROQUEL [Suspect]
     Active Substance: QUETIAPINE FUMARATE
     Dosage: 250 MG
     Route: 048
     Dates: start: 20170619, end: 20170619
  16. AKINETON [Concomitant]
     Active Substance: BIPERIDEN HYDROCHLORIDE
     Indication: PRODUCT USED FOR UNKNOWN INDICATION
     Dosage: 4 MG
     Route: 065
     Dates: start: 20170614, end: 20170622
  17. NACL [Concomitant]
     Active Substance: SODIUM CHLORIDE
     Indication: PRODUCT USED FOR UNKNOWN INDICATION
     Dosage: 2 DF
     Route: 065
     Dates: start: 20170614, end: 20170620
  18. TEMESTA [LORAZEPAM] [Concomitant]
     Active Substance: LORAZEPAM
     Indication: PRODUCT USED FOR UNKNOWN INDICATION
     Dosage: 3 MG
     Route: 065
     Dates: start: 20170707, end: 20170719
  19. AMANTADINE SULFATE [Concomitant]
     Active Substance: AMANTADINE SULFATE
     Indication: PRODUCT USED FOR UNKNOWN INDICATION
     Dosage: 200 MG
     Route: 065
     Dates: start: 20170708, end: 20170719
  20. GLUCOPHAGE [Concomitant]
     Active Substance: METFORMIN HYDROCHLORIDE
     Indication: PRODUCT USED FOR UNKNOWN INDICATION
     Dosage: 500 MG
     Route: 065
     Dates: start: 20170614, end: 20170703
  21. PRAXITEN [Concomitant]
     Active Substance: OXAZEPAM
     Dosage: 150 MG
     Route: 065
     Dates: start: 20170701, end: 20170704
  22. RISPERIDAL [Concomitant]
     Active Substance: RISPERIDONE
     Dosage: 1.5 MG
     Route: 065
     Dates: start: 20170705, end: 20170705
  23. SELEXID [Concomitant]
     Indication: PRODUCT USED FOR UNKNOWN INDICATION
     Dosage: 400 MG
     Route: 065
     Dates: start: 20170627, end: 20170630
  24. ABILIFY [Concomitant]
     Active Substance: ARIPIPRAZOLE
     Dosage: 10 MG
     Route: 065
     Dates: start: 20170727
  25. SEROQUEL [Suspect]
     Active Substance: QUETIAPINE FUMARATE
     Indication: PRODUCT USED FOR UNKNOWN INDICATION
     Dosage: 400 MG
     Route: 048
     Dates: start: 20170525, end: 20170616
  26. LEPONEX [Suspect]
     Active Substance: CLOZAPINE
     Dosage: 350 MG
     Route: 048
     Dates: start: 20170620, end: 20170620
  27. PRAXITEN [Concomitant]
     Active Substance: OXAZEPAM
     Dosage: 100 MG
     Route: 065
     Dates: start: 20170621, end: 20170626
  28. ABILIFY [Suspect]
     Active Substance: ARIPIPRAZOLE
     Indication: PRODUCT USED FOR UNKNOWN INDICATION
     Dosage: 15 MG, UNK
     Route: 048
     Dates: start: 2016, end: 20161122
  29. SERTRALINE [Suspect]
     Active Substance: SERTRALINE HYDROCHLORIDE
     Indication: PRODUCT USED FOR UNKNOWN INDICATION
     Dosage: 100 MG
     Route: 065
     Dates: start: 20170524, end: 20170619
  30. SEROQUEL [Suspect]
     Active Substance: QUETIAPINE FUMARATE
     Dosage: 500 MG, UNK
     Route: 048
     Dates: start: 201610, end: 20170524
  31. MOLAXOLE [Concomitant]
     Active Substance: POLYETHYLENE GLYCOL 3350\POTASSIUM CHLORIDE\SODIUM BICARBONATE\SODIUM CHLORIDE
     Indication: PRODUCT USED FOR UNKNOWN INDICATION
     Dosage: 1 DF
     Route: 065
     Dates: start: 20170614, end: 20170707
  32. PRAXITEN [Concomitant]
     Active Substance: OXAZEPAM
     Dosage: 40 MG
     Route: 065
     Dates: start: 20170619, end: 20170620
  33. PRAXITEN [Concomitant]
     Active Substance: OXAZEPAM
     Dosage: 75 MG
     Route: 065
     Dates: start: 20170705, end: 20170706
  34. AKINETON [Concomitant]
     Active Substance: BIPERIDEN HYDROCHLORIDE
     Dosage: 4 MG
     Route: 065
     Dates: start: 20170603, end: 20170707
  35. PANTOLOC [Concomitant]
     Active Substance: PANTOPRAZOLE SODIUM
     Indication: PRODUCT USED FOR UNKNOWN INDICATION
     Dosage: 40 MG
     Route: 065
     Dates: start: 20170614, end: 20170707
  36. PRAXITEN [Concomitant]
     Active Substance: OXAZEPAM
     Dosage: 90 MG
     Route: 065
     Dates: start: 20170618, end: 20170618
  37. SEROQUEL [Suspect]
     Active Substance: QUETIAPINE FUMARATE
     Dosage: 175 MG
     Route: 048
     Dates: start: 20170620, end: 20170620
  38. RISPERIDAL [Concomitant]
     Active Substance: RISPERIDONE
     Indication: PRODUCT USED FOR UNKNOWN INDICATION
     Dosage: 1 MG
     Route: 065
     Dates: start: 20170626, end: 20170626

REACTIONS (5)
  - Extrapyramidal disorder [Recovered/Resolved]
  - Neuroleptic malignant syndrome [Recovered/Resolved]
  - Delirium [Recovered/Resolved]
  - Underdose [Unknown]
  - Wrong technique in product usage process [Unknown]

NARRATIVE: CASE EVENT DATE: 20170619
